FAERS Safety Report 6741781-1 (Version None)
Quarter: 2010Q2

REPORT INFORMATION
  Report Type: 
  Country: None (occurrence: None)
  Receive Date: 20100526
  Receipt Date: 20100517
  Transmission Date: 20101027
  Serious: Yes (Hospitalization, Other)
  Sender: FDA-Public Use
  Company Number: FR-ROCHE-679674

PATIENT
  Sex: Female
  Weight: 61 kg

DRUGS (13)
  1. ROACTEMRA [Suspect]
     Indication: RHEUMATOID ARTHRITIS
     Dosage: FORM: INFUSION
     Route: 042
     Dates: start: 20090901, end: 20100106
  2. ROACTEMRA [Suspect]
     Route: 042
  3. CORTANCYL [Concomitant]
     Indication: RHEUMATOID ARTHRITIS
     Route: 048
  4. HEPARIN [Concomitant]
     Indication: MYOCARDIAL INFARCTION
  5. METHOTREXATE [Concomitant]
     Indication: RHEUMATOID ARTHRITIS
     Dates: end: 20100106
  6. CARDENSIEL [Concomitant]
     Dosage: DOSE; 1.25 DAILY
     Route: 048
  7. PLAQUENIL [Concomitant]
     Indication: RHEUMATOID ARTHRITIS
     Dosage: DOSE; 200X2
     Route: 048
  8. OROCAL D3 [Concomitant]
     Indication: RHEUMATOID ARTHRITIS
     Dosage: DOSE; 1200/800 DAILY
     Route: 048
  9. TAHOR [Concomitant]
     Indication: DYSLIPIDAEMIA
     Dosage: DOSE; 80 DAILY
     Route: 048
  10. IMOVANE [Concomitant]
     Dosage: DAILY
     Route: 048
  11. PREVISCAN [Concomitant]
     Indication: INTRACARDIAC THROMBUS
     Dosage: DAILY
     Route: 048
  12. ACTONEL [Concomitant]
     Indication: OSTEOPOROSIS
     Dosage: DOSE; 35 WEEKLY
  13. DIFFU K [Concomitant]
     Dosage: DOSE; 1X2 DAILY
     Route: 048

REACTIONS (2)
  - HERPES ZOSTER [None]
  - POST HERPETIC NEURALGIA [None]
